FAERS Safety Report 13268415 (Version 1)
Quarter: 2017Q1

REPORT INFORMATION
  Report Type: Spontaneous
  Country: US (occurrence: US)
  Receive Date: 20170224
  Receipt Date: 20170224
  Transmission Date: 20170428
  Serious: Yes (Hospitalization)
  Sender: FDA-Public Use
  Company Number: US-ROCHE-1898476

PATIENT
  Age: 44 Year
  Sex: Female

DRUGS (1)
  1. ACTEMRA [Suspect]
     Active Substance: TOCILIZUMAB
     Indication: PRODUCT USED FOR UNKNOWN INDICATION
     Dosage: ONGOING: YES
     Route: 042

REACTIONS (4)
  - Heart rate increased [Unknown]
  - Blood potassium decreased [Unknown]
  - Chest pain [Unknown]
  - Hypotension [Unknown]

NARRATIVE: CASE EVENT DATE: 20170221
